FAERS Safety Report 8331218-3 (Version None)
Quarter: 2012Q2

REPORT INFORMATION
  Report Type: 
  Country: None (occurrence: None)
  Receive Date: 20120502
  Receipt Date: 20120427
  Transmission Date: 20120825
  Serious: Yes (Hospitalization)
  Sender: FDA-Public Use
  Company Number: US-PFIZER INC-2012104863

PATIENT
  Sex: Male
  Weight: 65.306 kg

DRUGS (1)
  1. TOVIAZ [Suspect]
     Indication: POLLAKIURIA
     Dosage: 4 MG, ONCE
     Route: 048
     Dates: start: 20120424, end: 20120425

REACTIONS (2)
  - PAIN [None]
  - BLADDER OBSTRUCTION [None]
